FAERS Safety Report 8282739-3 (Version None)
Quarter: 2012Q2

REPORT INFORMATION
  Report Type: 
  Country: None (occurrence: None)
  Receive Date: 20120413
  Receipt Date: 20120402
  Transmission Date: 20120825
  Serious: Yes (Other)
  Sender: FDA-Public Use
  Company Number: DK-ROCHE-1057568

PATIENT

DRUGS (2)
  1. MABTHERA [Suspect]
     Indication: BASEDOW'S DISEASE
  2. THIAMAZOLE [Suspect]
     Indication: BASEDOW'S DISEASE

REACTIONS (5)
  - INFUSION RELATED REACTION [None]
  - GASTROINTESTINAL INFLAMMATION [None]
  - SERUM SICKNESS [None]
  - COLITIS ULCERATIVE [None]
  - POLYARTHRITIS [None]
